FAERS Safety Report 11773165 (Version 1)
Quarter: 2015Q4

REPORT INFORMATION
  Report Type: Spontaneous
  Country: US (occurrence: US)
  Receive Date: 20151124
  Receipt Date: 20151124
  Transmission Date: 20160304
  Serious: No
  Sender: FDA-Public Use
  Company Number: US-SUPERNUS PHARMACEUTICALS, INC.-2015SUP00108

PATIENT
  Age: 60 Year
  Sex: Female
  Weight: 102.4 kg

DRUGS (6)
  1. TROKENDI XR [Suspect]
     Active Substance: TOPIRAMATE
     Dosage: 50 MG, 2X/DAY
     Route: 048
     Dates: start: 20151009
  2. TROKENDI XR [Suspect]
     Active Substance: TOPIRAMATE
     Dosage: 50 MG, 1X/DAY
  3. APRICOT FACIAL SCRUB [Concomitant]
     Dosage: UNK
     Dates: start: 20151008, end: 20151009
  4. TROKENDI XR [Suspect]
     Active Substance: TOPIRAMATE
     Dosage: 25 MG, 2X/DAY
  5. ENALAPRIL 25/HCTZ 12.5 [Concomitant]
     Dosage: UNK, 1X/DAY
  6. SYNTHROID [Concomitant]
     Active Substance: LEVOTHYROXINE SODIUM
     Dosage: 50 ?M, 1X/DAY

REACTIONS (2)
  - Off label use [Not Recovered/Not Resolved]
  - Pruritus [Not Recovered/Not Resolved]

NARRATIVE: CASE EVENT DATE: 20151009
